FAERS Safety Report 4655907-7 (Version None)
Quarter: 2005Q2

REPORT INFORMATION
  Report Type: 
  Country: None (occurrence: None)
  Receive Date: 20050509
  Receipt Date: 20050427
  Transmission Date: 20051028
  Serious: Yes (Other)
  Sender: FDA-Public Use
  Company Number: 200513816GDDC

PATIENT
  Age: 47 Year
  Sex: Male

DRUGS (6)
  1. LEFLUNOMIDE [Suspect]
     Indication: RHEUMATOID ARTHRITIS
     Dosage: DOSE: UNK
  2. METFORMIN [Concomitant]
     Dosage: DOSE: UNK
  3. NABUMETONE [Concomitant]
     Dosage: DOSE: UNK
  4. PREDNISOLONE [Concomitant]
     Dosage: DOSE: UNK
  5. DIHYDROCODEINE BITARTRATE INJ [Concomitant]
     Dosage: DOSE: UNK
  6. TRAMADOL HCL [Concomitant]
     Dosage: DOSE: UNK

REACTIONS (4)
  - BLISTER [None]
  - PSEUDOPORPHYRIA [None]
  - SCAR [None]
  - SKIN ULCER [None]
